FAERS Safety Report 9367709 (Version 1)
Quarter: 2013Q2

REPORT INFORMATION
  Report Type: Spontaneous
  Country: US (occurrence: US)
  Receive Date: 20130625
  Receipt Date: 20130625
  Transmission Date: 20140414
  Serious: No
  Sender: FDA-Public Use
  Company Number: US-ASTELLAS-2012US007762

PATIENT
  Age: 85 Year
  Sex: Female

DRUGS (14)
  1. VESICARE [Suspect]
     Indication: HYPERTONIC BLADDER
     Dosage: 5 MG, UID/QD
     Route: 048
     Dates: start: 20120902, end: 20120916
  2. RAMIPRIL [Concomitant]
     Indication: BLOOD PRESSURE
     Dosage: 5 MG, UID/QD
     Route: 048
  3. ALLOPURINOL [Concomitant]
     Indication: GOUT
     Dosage: 100 MG, UID/QD
     Route: 048
  4. LASIX                              /00032601/ [Concomitant]
     Indication: BLOOD PRESSURE
     Dosage: 20 MG, UID/QD
     Route: 065
  5. IMDUR [Concomitant]
     Indication: CARDIAC DISORDER
     Dosage: 30 MG, UID/QD
     Route: 048
  6. NITROSTAT [Concomitant]
     Indication: ANGINA PECTORIS
     Dosage: UP TO 3 PRN
     Route: 065
  7. LIPITOR [Concomitant]
     Indication: BLOOD CHOLESTEROL
     Dosage: 40 MG, UID/QD
     Route: 065
  8. ZETIA [Concomitant]
     Indication: BLOOD CHOLESTEROL
     Dosage: 10 MG, UID/QD
     Route: 048
  9. VICODIN [Concomitant]
     Indication: PRODUCT USED FOR UNKNOWN INDICATION
     Dosage: UNK
     Route: 065
  10. GABAPENTIN [Concomitant]
     Indication: NEUROPATHY PERIPHERAL
     Dosage: 300 MG, UID/QD
  11. METANX [Concomitant]
     Indication: NEUROPATHY PERIPHERAL
     Dosage: 2 DF, UID/QD
     Route: 048
  12. ASPIRIN [Concomitant]
     Indication: CARDIAC DISORDER
     Dosage: 325 MG, UID/QD
     Route: 065
  13. VITAMIN D                          /00107901/ [Concomitant]
     Dosage: 1000 MG, UID/QD
     Route: 065
  14. TUMS ULTRA [Concomitant]
     Indication: BONE DENSITY ABNORMAL
     Dosage: 4 DF, UID/QD
     Route: 065

REACTIONS (5)
  - Drug ineffective [Unknown]
  - Feeling hot [Recovering/Resolving]
  - Cold sweat [Not Recovered/Not Resolved]
  - Hyperhidrosis [Unknown]
  - Fatigue [Unknown]
